FAERS Safety Report 9135375 (Version 1)
Quarter: 2013Q1

REPORT INFORMATION
  Report Type: Spontaneous
  Country: RU (occurrence: None)
  Receive Date: 20130208
  Receipt Date: 20130208
  Transmission Date: 20140127
  Serious: Yes (Death, Other)
  Sender: FDA-Public Use
  Company Number: MPS1-1000918

PATIENT
  Age: 32 Year
  Sex: Female
  Weight: 41 kg

DRUGS (1)
  1. ALDURAZYME (LARONIDASE) CONCENTRATE FOR SOLUTION FOR INFUSION [Suspect]
     Indication: MUCOPOLYSACCHARIDOSIS I
     Route: 042
     Dates: start: 20120412, end: 20130110

REACTIONS (5)
  - Circulatory collapse [None]
  - Cardiac failure chronic [None]
  - Dyspnoea [None]
  - Decreased appetite [None]
  - Disease progression [None]
